FAERS Safety Report 5789229-8 (Version None)
Quarter: 2008Q2

REPORT INFORMATION
  Report Type: 
  Country: None (occurrence: None)
  Receive Date: 20080626
  Receipt Date: 20080122
  Transmission Date: 20081010
  Serious: No
  Sender: FDA-Public Use
  Company Number: US-ASTRAZENECA-2008UW01616

PATIENT
  Age: 60 Year
  Sex: Female
  Weight: 64.4 kg

DRUGS (5)
  1. PULMICORT FLEXHALER [Suspect]
     Indication: BRONCHITIS
     Route: 055
  2. PULMICORT FLEXHALER [Suspect]
     Indication: COUGH
     Route: 055
  3. PREVACID [Concomitant]
  4. CARAFATE [Concomitant]
  5. HORMONE REPLACEMENT THERAPY [Concomitant]

REACTIONS (1)
  - FUNGAL INFECTION [None]
